FAERS Safety Report 26130141 (Version 1)
Quarter: 2025Q4

REPORT INFORMATION
  Report Type: Spontaneous
  Country: AU (occurrence: AU)
  Receive Date: 20251208
  Receipt Date: 20251208
  Transmission Date: 20260118
  Serious: Yes (Other)
  Sender: BIOVITRUM
  Company Number: AU-BIOVITRUM-2025-AU-016883

PATIENT
  Age: 32 Year
  Sex: Female

DRUGS (1)
  1. KINERET [Suspect]
     Active Substance: ANAKINRA
     Indication: Product used for unknown indication

REACTIONS (9)
  - Pancytopenia [Unknown]
  - Abdominal pain [Unknown]
  - Blood lactate dehydrogenase increased [Unknown]
  - Diarrhoea [Unknown]
  - Disseminated intravascular coagulation [Unknown]
  - Off label use [Unknown]
  - Pyrexia [Unknown]
  - Serum ferritin increased [Unknown]
  - Rash [Unknown]
